FAERS Safety Report 11044285 (Version 2)
Quarter: 2015Q3

REPORT INFORMATION
  Report Type: Spontaneous
  Country: US (occurrence: US)
  Receive Date: 20150417
  Receipt Date: 20150807
  Transmission Date: 20151125
  Serious: No
  Sender: FDA-Public Use
  Company Number: US-PFIZER INC-2015128138

PATIENT
  Age: 57 Year
  Sex: Female

DRUGS (3)
  1. XGEVA [Concomitant]
     Active Substance: DENOSUMAB
  2. EXEMESTANE. [Suspect]
     Active Substance: EXEMESTANE
     Indication: BREAST CANCER METASTATIC
     Dosage: UNK
  3. FASLODEX [Suspect]
     Active Substance: FULVESTRANT
     Indication: BREAST CANCER METASTATIC
     Dosage: UNK
     Dates: start: 201309

REACTIONS (2)
  - Disease progression [Unknown]
  - Breast cancer metastatic [Unknown]
